FAERS Safety Report 10560326 (Version 1)
Quarter: 2014Q4

REPORT INFORMATION
  Report Type: Spontaneous
  Country: US (occurrence: None)
  Receive Date: 20141031
  Receipt Date: 20141031
  Transmission Date: 20150529
  Serious: Yes (Hospitalization)
  Sender: FDA-Public Use
  Company Number: None

PATIENT
  Age: 91 Year
  Sex: Female

DRUGS (1)
  1. VANCOMYCIN HCL [Suspect]
     Active Substance: VANCOMYCIN HYDROCHLORIDE

REACTIONS (5)
  - Rash erythematous [None]
  - Ill-defined disorder [None]
  - Rash generalised [None]
  - Blood creatine increased [None]
  - Pyrexia [None]

NARRATIVE: CASE EVENT DATE: 20140916
